FAERS Safety Report 13013210 (Version 1)
Quarter: 2016Q4

REPORT INFORMATION
  Report Type: Spontaneous
  Country: US (occurrence: US)
  Receive Date: 20161208
  Receipt Date: 20161208
  Transmission Date: 20170207
  Serious: No
  Sender: FDA-Public Use
  Company Number: None

PATIENT
  Age: 64 Year

DRUGS (9)
  1. AMLODIPINE [Concomitant]
     Active Substance: AMLODIPINE BESYLATE
  2. MYCOPHENOLAT [Concomitant]
     Active Substance: MYCOPHENOLATE MOFETIL
  3. NEPHRO-VITE [Concomitant]
  4. PANTOPRAZOLE [Concomitant]
     Active Substance: PANTOPRAZOLE SODIUM
  5. PROTEINEX [Concomitant]
  6. CHLORASEPTIC SORE THROAT [Concomitant]
     Active Substance: PHENOL
  7. TACROLIMUS. [Concomitant]
     Active Substance: TACROLIMUS
  8. ENTECAVIR 1MG TAB [Suspect]
     Active Substance: ENTECAVIR
     Indication: TONGUE NEOPLASM MALIGNANT STAGE UNSPECIFIED
     Route: 048
     Dates: start: 20160216
  9. EMERGEN-C [Concomitant]
     Active Substance: VITAMINS

REACTIONS (1)
  - Oropharyngeal neoplasm [None]

NARRATIVE: CASE EVENT DATE: 201611
